FAERS Safety Report 8803984 (Version 1)
Quarter: 2012Q4

REPORT INFORMATION
  Report Type: 
  Country: US (occurrence: US)
  Receive Date: 20120924
  Receipt Date: 20120924
  Transmission Date: 20130627
  Serious: Yes (Other)
  Sender: FDA-Public Use
  Company Number: US-GLAXOSMITHKLINE-A0976825A

PATIENT
  Age: 48 Year
  Sex: Female
  Weight: 81.4 kg

DRUGS (2)
  1. TYKERB [Suspect]
     Indication: BREAST CANCER
     Dosage: 1250MG Per day
     Route: 065
     Dates: start: 20111227
  2. XELODA [Suspect]
     Indication: BREAST CANCER
     Dosage: 2.5G per day
     Route: 048
     Dates: start: 20111227

REACTIONS (2)
  - Palmar-plantar erythrodysaesthesia syndrome [Recovering/Resolving]
  - Surgery [Unknown]
